FAERS Safety Report 23416274 (Version 1)
Quarter: 2024Q1

REPORT INFORMATION
  Report Type: Spontaneous
  Country: None (occurrence: US)
  Receive Date: 20240118
  Receipt Date: 20240118
  Transmission Date: 20240409
  Serious: Yes (Other)
  Sender: FDA-Public Use
  Company Number: US-SERB S.A.S.-2151440

PATIENT
  Age: 5 Year
  Sex: Female

DRUGS (1)
  1. VORAXAZE [Suspect]
     Active Substance: GLUCARPIDASE
     Indication: Toxicity to various agents
     Route: 042

REACTIONS (3)
  - Renal failure [Unknown]
  - Drug ineffective [Unknown]
  - Off label use [Unknown]
